FAERS Safety Report 5206059-6 (Version None)
Quarter: 2007Q1

REPORT INFORMATION
  Report Type: 
  Country: None (occurrence: None)
  Receive Date: 20070108
  Receipt Date: 20070103
  Transmission Date: 20070707
  Serious: Yes (Life-Threatening, Hospitalization)
  Sender: FDA-Public Use
  Company Number: S06-USA-04285-01

PATIENT
  Age: 63 Year
  Sex: Female

DRUGS (9)
  1. LEXAPRO [Suspect]
     Indication: DEPRESSION
     Dosage: 20 MG QD PO
     Route: 048
     Dates: start: 20040101
  2. REMERON [Suspect]
     Dates: start: 20061011, end: 20061011
  3. REMERON [Suspect]
  4. ASPIRIN [Concomitant]
  5. TOPROL-XL [Concomitant]
  6. ZETIA [Concomitant]
  7. LIPITOR [Concomitant]
  8. NIACIN [Concomitant]
  9. VICODIN [Concomitant]

REACTIONS (6)
  - COMA [None]
  - HYPERTENSION [None]
  - INTENTIONAL OVERDOSE [None]
  - RESPIRATORY FAILURE [None]
  - SUICIDE ATTEMPT [None]
  - TACHYCARDIA [None]
